FAERS Safety Report 15708303 (Version 2)
Quarter: 2019Q1

REPORT INFORMATION
  Report Type: Spontaneous
  Country: GB (occurrence: GB)
  Receive Date: 20181211
  Receipt Date: 20190121
  Transmission Date: 20190417
  Serious: Yes (Hospitalization, Other)
  Sender: FDA-Public Use
  Company Number: GB-AUROBINDO-07-AUR-00401

PATIENT
  Age: 81 Year
  Sex: Male

DRUGS (6)
  1. SIMVASTATIN 40 MG FILM COATED TABLETS [Suspect]
     Active Substance: SIMVASTATIN
     Indication: PROPHYLAXIS
     Dosage: 40 MILLIGRAM STARTED LONG TERM
     Route: 048
     Dates: end: 20061119
  2. OCTREOTIDE. [Concomitant]
     Active Substance: OCTREOTIDE
     Dosage: 100 MICROGRAM, ONCE A DAY
     Route: 058
     Dates: start: 20061007
  3. PARACETAMOL [Concomitant]
     Active Substance: ACETAMINOPHEN
     Dosage: 1 GRAM, ONCE A DAY
     Route: 048
  4. FLUCONAZOLE CAPSULES, HARD 50MG [Suspect]
     Active Substance: FLUCONAZOLE
     Indication: OESOPHAGITIS
     Dosage: 50 MILLIGRAM, ONCE A DAY
     Route: 048
     Dates: start: 20061026, end: 20061120
  5. PARACETAMOL [Concomitant]
     Active Substance: ACETAMINOPHEN
     Indication: PAIN
     Dosage: 1 G,FOUR TIMES/DAY,
     Route: 048
  6. OCTREOTIDE. [Concomitant]
     Active Substance: OCTREOTIDE
     Indication: VIPOMA
     Dosage: 100 MICROGRAM, TWO TIMES A DAY
     Route: 058
     Dates: start: 20061007

REACTIONS (2)
  - Rhabdomyolysis [Recovering/Resolving]
  - Renal impairment [Recovering/Resolving]
